FAERS Safety Report 9111653 (Version 1)
Quarter: 2013Q1

REPORT INFORMATION
  Report Type: Spontaneous
  Country: US (occurrence: US)
  Receive Date: 20130219
  Receipt Date: 20130219
  Transmission Date: 20140127
  Serious: No
  Sender: FDA-Public Use
  Company Number: US-BRISTOL-MYERS SQUIBB COMPANY-17228487

PATIENT
  Age: 42 Year
  Sex: Female
  Weight: 63.94 kg

DRUGS (5)
  1. ORENCIA [Suspect]
     Route: 042
  2. METHOTREXATE [Concomitant]
  3. MULTIVITAMIN [Concomitant]
  4. FISH OIL [Concomitant]
  5. FLAXSEED [Concomitant]

REACTIONS (4)
  - Cough [Recovering/Resolving]
  - Nasopharyngitis [Recovering/Resolving]
  - Malaise [Recovering/Resolving]
  - Pyrexia [Recovering/Resolving]
